FAERS Safety Report 8848573 (Version 1)
Quarter: 2012Q4

REPORT INFORMATION
  Report Type: 
  Country: GB (occurrence: GB)
  Receive Date: 20121018
  Receipt Date: 20121018
  Transmission Date: 20130627
  Serious: Yes (Other)
  Sender: FDA-Public Use
  Company Number: GB-GLAXOSMITHKLINE-B0836969A

PATIENT
  Sex: Female
  Weight: 55 kg

DRUGS (1)
  1. FLUTICASONE PROPIONATE [Suspect]
     Route: 055
     Dates: start: 2006

REACTIONS (1)
  - Adrenal suppression [Unknown]
